FAERS Safety Report 14807121 (Version 1)
Quarter: 2018Q2

REPORT INFORMATION
  Report Type: Report from Study
  Country: DE (occurrence: DE)
  Receive Date: 20180425
  Receipt Date: 20180425
  Transmission Date: 20180711
  Serious: Yes (Hospitalization, Disabling)
  Sender: FDA-Public Use
  Company Number: DE-TEVA-2017-DE-837508

PATIENT
  Age: 57 Year
  Sex: Female
  Weight: 52.3 kg

DRUGS (2)
  1. VARGATEF [Suspect]
     Active Substance: NINTEDANIB
     Indication: LUNG ADENOCARCINOMA
     Dosage: 100 MILLIGRAM DAILY;
     Route: 048
     Dates: start: 20170930
  2. DOCETAXEL. [Suspect]
     Active Substance: DOCETAXEL
     Indication: LUNG ADENOCARCINOMA
     Dosage: UNIT DOSE AND DAILY DOSE: 75MG/M^2 BODY SURFACE AREA (BSA)
     Dates: start: 20170929

REACTIONS (2)
  - Diarrhoea [Recovered/Resolved]
  - Bronchitis [Recovered/Resolved]

NARRATIVE: CASE EVENT DATE: 20171003
